FAERS Safety Report 12203807 (Version 1)
Quarter: 2016Q1

REPORT INFORMATION
  Report Type: Spontaneous
  Country: US (occurrence: None)
  Receive Date: 20160322
  Receipt Date: 20160322
  Transmission Date: 20160526
  Serious: Yes (Disabling)
  Sender: FDA-Public Use
  Company Number: None

PATIENT
  Age: 35 Year
  Sex: Male
  Weight: 68.04 kg

DRUGS (2)
  1. LEVOFLOXACIN 750 MG CHI HEALTH [Suspect]
     Active Substance: LEVOFLOXACIN
     Indication: SINUSITIS
     Route: 048
     Dates: start: 20160126, end: 20160129
  2. CLARITIN-D 12 HOUR [Concomitant]
     Active Substance: LORATADINE\PSEUDOEPHEDRINE SULFATE

REACTIONS (3)
  - Tendon pain [None]
  - Muscular weakness [None]
  - Pain in extremity [None]

NARRATIVE: CASE EVENT DATE: 20160130
